FAERS Safety Report 12328300 (Version 3)
Quarter: 2016Q2

REPORT INFORMATION
  Report Type: Spontaneous
  Country: JP (occurrence: JP)
  Receive Date: 20160503
  Receipt Date: 20160527
  Transmission Date: 20160815
  Serious: Yes (Hospitalization)
  Sender: FDA-Public Use
  Company Number: JP-CONCORDIA PHARMACEUTICALS INC.-CO-ZO-JP-2016-054

PATIENT
  Age: 8 Year
  Sex: Female

DRUGS (12)
  1. ZONISAMIDE. [Suspect]
     Active Substance: ZONISAMIDE
     Route: 048
     Dates: start: 20160404, end: 20160405
  2. ALEVIATIN [Suspect]
     Active Substance: PHENYTOIN SODIUM
     Indication: EPILEPSY
     Dosage: 120 MG
     Route: 048
     Dates: start: 20160129, end: 20160202
  3. ALEVIATIN [Suspect]
     Active Substance: PHENYTOIN SODIUM
     Dosage: 140 MG
     Route: 048
     Dates: start: 20160203, end: 20160220
  4. ZONISAMIDE. [Suspect]
     Active Substance: ZONISAMIDE
     Route: 048
     Dates: start: 20150819, end: 20151103
  5. TOPINA [Concomitant]
     Active Substance: TOPIRAMATE
     Indication: EPILEPSY
     Dosage: 40 MG
     Route: 048
     Dates: start: 20160223, end: 20160407
  6. ZONISAMIDE. [Suspect]
     Active Substance: ZONISAMIDE
     Route: 048
     Dates: start: 20151209, end: 20160227
  7. ZONISAMIDE. [Suspect]
     Active Substance: ZONISAMIDE
     Route: 048
     Dates: start: 20160228, end: 20160403
  8. ZONISAMIDE. [Suspect]
     Active Substance: ZONISAMIDE
     Indication: EPILEPSY
     Route: 048
     Dates: start: 20150805, end: 20150818
  9. ALEVIATIN [Suspect]
     Active Substance: PHENYTOIN SODIUM
     Dosage: 150 MG
     Route: 048
     Dates: start: 20160221, end: 20160306
  10. ALEVIATIN [Suspect]
     Active Substance: PHENYTOIN SODIUM
     Dosage: 160 MG
     Route: 048
     Dates: start: 20160307, end: 20160329
  11. ALEVIATIN [Suspect]
     Active Substance: PHENYTOIN SODIUM
     Dosage: 156 MG
     Route: 048
     Dates: start: 20160330, end: 20160405
  12. ZONISAMIDE. [Suspect]
     Active Substance: ZONISAMIDE
     Route: 048
     Dates: start: 20151104, end: 20151208

REACTIONS (1)
  - Agranulocytosis [Recovering/Resolving]

NARRATIVE: CASE EVENT DATE: 20160302
